FAERS Safety Report 25192023 (Version 2)
Quarter: 2025Q2

REPORT INFORMATION
  Report Type: Spontaneous
  Country: JP (occurrence: JP)
  Receive Date: 20250414
  Receipt Date: 20250529
  Transmission Date: 20250717
  Serious: Yes (Hospitalization, Other)
  Sender: AMGEN
  Company Number: JP-DSJP-DS-2025-134698-

PATIENT
  Sex: Female

DRUGS (6)
  1. DENOSUMAB [Suspect]
     Active Substance: DENOSUMAB
     Indication: Osteoporosis
     Route: 065
     Dates: start: 20230530, end: 20230530
  2. DENOSUMAB [Suspect]
     Active Substance: DENOSUMAB
     Route: 065
     Dates: start: 20231129, end: 20231129
  3. DENOSUMAB [Suspect]
     Active Substance: DENOSUMAB
     Route: 065
     Dates: start: 20240531, end: 20240531
  4. ELDECALCITOL [Concomitant]
     Active Substance: ELDECALCITOL
     Indication: Product used for unknown indication
     Route: 065
  5. CALCIUM LACTATE [Concomitant]
     Active Substance: CALCIUM LACTATE
     Indication: Product used for unknown indication
     Route: 065
  6. ADETPHOS [Concomitant]
     Active Substance: ADENOSINE TRIPHOSPHATE
     Indication: Product used for unknown indication
     Route: 065

REACTIONS (7)
  - Femur fracture [Recovering/Resolving]
  - Lumbar vertebral fracture [Unknown]
  - Bone density decreased [Unknown]
  - Inappropriate schedule of product administration [Unknown]
  - Fracture [Unknown]
  - Tooth disorder [Unknown]
  - Angiosclerosis [Unknown]

NARRATIVE: CASE EVENT DATE: 20240101
